FAERS Safety Report 12447260 (Version 1)
Quarter: 2016Q2

REPORT INFORMATION
  Report Type: Spontaneous
  Country: US (occurrence: None)
  Receive Date: 20160607
  Receipt Date: 20160607
  Transmission Date: 20160815
  Serious: Yes (Hospitalization, Other)
  Sender: FDA-Public Use
  Company Number: None

PATIENT
  Sex: Female
  Weight: 73.48 kg

DRUGS (18)
  1. AMLODIPINE [Concomitant]
     Active Substance: AMLODIPINE BESYLATE
  2. CARAFATE [Concomitant]
     Active Substance: SUCRALFATE
  3. KENALOG [Concomitant]
     Active Substance: TRIAMCINOLONE ACETONIDE
  4. GABAPENTIN. [Concomitant]
     Active Substance: GABAPENTIN
  5. LORATADINE. [Concomitant]
     Active Substance: LORATADINE
  6. LISINOPRIL. [Suspect]
     Active Substance: LISINOPRIL
     Indication: HYPERTENSION
     Dosage: 1 PILL
     Route: 048
     Dates: start: 20141001, end: 20150426
  7. LAMICTAL [Concomitant]
     Active Substance: LAMOTRIGINE
  8. LACTOBACILLUS [Concomitant]
     Active Substance: LACTOBACILLUS ACIDOPHILUS
  9. DESONATE [Concomitant]
     Active Substance: DESONIDE
  10. VIMPAT [Concomitant]
     Active Substance: LACOSAMIDE
  11. BENZTROPINE [Concomitant]
     Active Substance: BENZTROPINE
  12. HYDROCHLOROTHIAZED [Concomitant]
  13. DESOWEN [Concomitant]
     Active Substance: DESONIDE
  14. BUSIPIRONE [Concomitant]
  15. CLINDAMYCIN [Concomitant]
     Active Substance: CLINDAMYCIN\CLINDAMYCIN PHOSPHATE
  16. DOXEPIN [Concomitant]
     Active Substance: DOXEPIN
  17. LATUDA [Concomitant]
     Active Substance: LURASIDONE HYDROCHLORIDE
  18. BUSPAR [Concomitant]
     Active Substance: BUSPIRONE HYDROCHLORIDE

REACTIONS (4)
  - Anaphylactic reaction [None]
  - Swollen tongue [None]
  - Blood pressure increased [None]
  - Headache [None]
